FAERS Safety Report 10077966 (Version 1)
Quarter: 2014Q2

REPORT INFORMATION
  Report Type: Spontaneous
  Country: US (occurrence: US)
  Receive Date: 20140415
  Receipt Date: 20140415
  Transmission Date: 20141212
  Serious: Yes (Hospitalization, Other)
  Sender: FDA-Public Use
  Company Number: US-ROCHE-1378125

PATIENT
  Sex: Female

DRUGS (2)
  1. RITUXIMAB [Suspect]
     Indication: GLOMERULONEPHRITIS MEMBRANOPROLIFERATIVE
     Route: 065
     Dates: start: 201309, end: 201310
  2. BENADRYL (UNITED STATES) [Concomitant]

REACTIONS (4)
  - Dehydration [Unknown]
  - Renal failure [Unknown]
  - Blood pressure abnormal [Unknown]
  - Weight decreased [Unknown]
